FAERS Safety Report 23810578 (Version 3)
Quarter: 2024Q2

REPORT INFORMATION
  Report Type: Spontaneous
  Country: US (occurrence: US)
  Receive Date: 20240502
  Receipt Date: 20240627
  Transmission Date: 20240716
  Serious: Yes (Other)
  Sender: FDA-Public Use
  Company Number: US-PFIZER INC-202400096741

PATIENT
  Age: 38 Year
  Sex: Female
  Weight: 71.202 kg

DRUGS (3)
  1. ZAVZPRET [Suspect]
     Active Substance: ZAVEGEPANT HYDROCHLORIDE
     Indication: Migraine
     Dosage: 10 MG, 1X/DAY
     Route: 045
     Dates: start: 20240415, end: 20240415
  2. VYVANSE [Concomitant]
     Active Substance: LISDEXAMFETAMINE DIMESYLATE
     Indication: Attention deficit hyperactivity disorder
     Dosage: 70 MG, 1X/DAY (QAM)
  3. MOUNJARO [Concomitant]
     Active Substance: TIRZEPATIDE
     Indication: Type 2 diabetes mellitus
     Dosage: 15 MG/ML, WEEKLY

REACTIONS (6)
  - Hypersensitivity [Recovered/Resolved]
  - Pharyngeal swelling [Recovered/Resolved]
  - Swelling face [Recovered/Resolved]
  - Paraesthesia oral [Recovered/Resolved]
  - Swollen tongue [Recovered/Resolved]
  - Off label use [Unknown]

NARRATIVE: CASE EVENT DATE: 20240415
